FAERS Safety Report 15088212 (Version 2)
Quarter: 2018Q3

REPORT INFORMATION
  Report Type: Report from Study
  Country: DE (occurrence: DE)
  Receive Date: 20180629
  Receipt Date: 20180711
  Transmission Date: 20181010
  Serious: Yes (Death, Hospitalization, Other)
  Sender: FDA-Public Use
  Company Number: DE-ROCHE-1368096

PATIENT
  Sex: Female
  Weight: 58.2 kg

DRUGS (29)
  1. CALCIUM FOLINATE [Concomitant]
     Active Substance: LEUCOVORIN CALCIUM
     Route: 042
     Dates: start: 20140225, end: 20140304
  2. TORSEMIDE. [Concomitant]
     Active Substance: TORSEMIDE
     Indication: OEDEMA
     Route: 048
     Dates: start: 20130905
  3. LOPERAMID [Concomitant]
     Active Substance: LOPERAMIDE
     Indication: DIARRHOEA
     Route: 048
     Dates: start: 20130910
  4. CIPROFLOXACIN. [Concomitant]
     Active Substance: CIPROFLOXACIN
     Indication: URINARY TRACT INFECTION
     Route: 048
     Dates: start: 20130924, end: 20131004
  5. PANTOZOL [Concomitant]
     Active Substance: PANTOPRAZOLE SODIUM
     Route: 065
  6. 5?FU [Concomitant]
     Active Substance: FLUOROURACIL
     Route: 042
     Dates: start: 20131119, end: 20131210
  7. 5?FU [Concomitant]
     Active Substance: FLUOROURACIL
     Route: 042
     Dates: start: 20140128, end: 20140218
  8. CALCIUM FOLINATE [Concomitant]
     Active Substance: LEUCOVORIN CALCIUM
     Indication: COLORECTAL CANCER
     Route: 042
     Dates: start: 20130910, end: 20131001
  9. OXALIPLATIN. [Concomitant]
     Active Substance: OXALIPLATIN
     Route: 042
     Dates: start: 20131015, end: 20131029
  10. BEVACIZUMAB. [Suspect]
     Active Substance: BEVACIZUMAB
     Indication: COLORECTAL CANCER METASTATIC
     Dosage: LAST DOSE PRIOR TO SAE 25/FEB/2014
     Route: 042
     Dates: start: 20130910, end: 20130910
  11. BEVACIZUMAB. [Suspect]
     Active Substance: BEVACIZUMAB
     Dosage: LAST DOSE PRIOR TO SAE 25/FEB/2014
     Route: 042
     Dates: start: 20140225, end: 20140225
  12. 5?FU [Concomitant]
     Active Substance: FLUOROURACIL
     Route: 042
     Dates: start: 20140114, end: 20140121
  13. TAVOR EXPIDET [Concomitant]
     Active Substance: LORAZEPAM
     Dosage: AT NIGHT
     Route: 065
  14. 5?FU [Concomitant]
     Active Substance: FLUOROURACIL
     Indication: COLORECTAL CANCER
     Route: 042
     Dates: start: 20130910, end: 20131001
  15. MCP [Concomitant]
     Active Substance: METOCLOPRAMIDE HYDROCHLORIDE
     Dosage: MCP DROPS
     Route: 048
  16. IRINOTECAN [Concomitant]
     Active Substance: IRINOTECAN
     Indication: COLORECTAL CANCER
     Route: 042
     Dates: start: 20140114, end: 20140204
  17. IRINOTECAN [Concomitant]
     Active Substance: IRINOTECAN
     Route: 042
     Dates: start: 20140211, end: 20140304
  18. 5?FU [Concomitant]
     Active Substance: FLUOROURACIL
     Route: 042
     Dates: start: 20140225, end: 20140304
  19. GRANISETRON [Concomitant]
     Active Substance: GRANISETRON
     Indication: NAUSEA
     Route: 042
     Dates: start: 20130910
  20. CALCIUM FOLINATE [Concomitant]
     Active Substance: LEUCOVORIN CALCIUM
     Route: 042
     Dates: start: 20131119, end: 20131210
  21. CALCIUM FOLINATE [Concomitant]
     Active Substance: LEUCOVORIN CALCIUM
     Route: 042
     Dates: start: 20140114, end: 20140121
  22. OXALIPLATIN. [Concomitant]
     Active Substance: OXALIPLATIN
     Indication: COLORECTAL CANCER
     Route: 042
     Dates: start: 20130910, end: 20130924
  23. DEXAMETHASON [Concomitant]
     Active Substance: DEXAMETHASONE
     Indication: NAUSEA
     Route: 042
     Dates: start: 20130910
  24. 5?FU [Concomitant]
     Active Substance: FLUOROURACIL
     Route: 042
     Dates: start: 20131015, end: 20131105
  25. METAMIZOL [Concomitant]
     Active Substance: METAMIZOLE SODIUM
     Route: 048
  26. CALCIUM FOLINATE [Concomitant]
     Active Substance: LEUCOVORIN CALCIUM
     Route: 042
     Dates: start: 20131015, end: 20131105
  27. CALCIUM FOLINATE [Concomitant]
     Active Substance: LEUCOVORIN CALCIUM
     Route: 042
     Dates: start: 20140128, end: 20140204
  28. CALCIUM FOLINATE [Concomitant]
     Active Substance: LEUCOVORIN CALCIUM
     Route: 042
     Dates: start: 20140211, end: 20140218
  29. OXALIPLATIN. [Concomitant]
     Active Substance: OXALIPLATIN
     Route: 042
     Dates: start: 20131119, end: 20131203

REACTIONS (7)
  - Anaemia of malignant disease [Recovered/Resolved]
  - Hepatic failure [Fatal]
  - Gastrointestinal haemorrhage [Recovered/Resolved]
  - Cachexia [Unknown]
  - General physical health deterioration [Fatal]
  - Stomal hernia [Recovered/Resolved]
  - Anaemia [Recovered/Resolved]

NARRATIVE: CASE EVENT DATE: 20140311
